FAERS Safety Report 10189977 (Version 1)
Quarter: 2014Q2

REPORT INFORMATION
  Report Type: Spontaneous
  Country: GB (occurrence: GB)
  Receive Date: 20140522
  Receipt Date: 20140522
  Transmission Date: 20141212
  Serious: Yes (Death)
  Sender: FDA-Public Use
  Company Number: GB-AMGEN-GBRSP2014036334

PATIENT
  Age: 77 Year
  Sex: Male

DRUGS (9)
  1. PROLIA [Suspect]
     Indication: OSTEOPOROTIC FRACTURE
     Dosage: 60 MG, UNK
     Route: 058
     Dates: start: 20140313
  2. AMLODIPINE [Concomitant]
     Route: 065
  3. ASPIRIN [Concomitant]
     Route: 065
  4. ATORVASTATIN [Concomitant]
     Route: 065
  5. CALCIUM + VITAMIN D3 [Concomitant]
     Route: 065
  6. CLONAZEPAM [Concomitant]
     Route: 065
  7. MEBEVERINE [Concomitant]
     Route: 065
  8. MORPHINE [Concomitant]
     Route: 065
  9. OMEPRAZOLE [Concomitant]
     Route: 065

REACTIONS (2)
  - Cerebrovascular accident [Fatal]
  - Loss of consciousness [Not Recovered/Not Resolved]
